FAERS Safety Report 11355049 (Version 1)
Quarter: 2015Q3

REPORT INFORMATION
  Report Type: Spontaneous
  Country: US (occurrence: US)
  Receive Date: 20150807
  Receipt Date: 20150807
  Transmission Date: 20151125
  Serious: No
  Sender: FDA-Public Use
  Company Number: US-JNJFOC-20150702298

PATIENT
  Age: 70 Year
  Sex: Female
  Weight: 72.58 kg

DRUGS (5)
  1. ZYRTEC [Suspect]
     Active Substance: CETIRIZINE HYDROCHLORIDE
     Route: 048
  2. UNSPECIFIED CREAMS NOS [Concomitant]
     Active Substance: UNSPECIFIED INGREDIENT
     Indication: ECZEMA
     Route: 061
  3. ZYRTEC [Suspect]
     Active Substance: CETIRIZINE HYDROCHLORIDE
     Indication: ECZEMA
     Dosage: ONE TABLET DAILY FOR ABOUT A WEEK
     Route: 048
     Dates: start: 20150626
  4. PRESCRIPTION MEDICATIONS, NOS [Concomitant]
     Indication: PRODUCT USED FOR UNKNOWN INDICATION
     Route: 065
  5. BENADRYL [Concomitant]
     Active Substance: DIPHENHYDRAMINE HYDROCHLORIDE
     Indication: ECZEMA
     Dosage: 1 TABLET AS NEEDED BEFORE BED
     Route: 065

REACTIONS (4)
  - Somnolence [Not Recovered/Not Resolved]
  - Fatigue [Not Recovered/Not Resolved]
  - Product use issue [Not Recovered/Not Resolved]
  - Wrong patient received medication [Not Recovered/Not Resolved]
